FAERS Safety Report 14615665 (Version 1)
Quarter: 2018Q1

REPORT INFORMATION
  Report Type: Spontaneous
  Country: US (occurrence: US)
  Receive Date: 20180309
  Receipt Date: 20180309
  Transmission Date: 20180509
  Serious: No
  Sender: FDA-Public Use
  Company Number: US-GLENMARK PHARMACEUTICALS-2017GMK026484

PATIENT

DRUGS (1)
  1. ALYACEN 1/35 [Suspect]
     Active Substance: ETHINYL ESTRADIOL\NORETHINDRONE
     Indication: CONTRACEPTION
     Dosage: 1 DF, OD
     Route: 048
     Dates: start: 20170212

REACTIONS (2)
  - Menstruation delayed [Recovered/Resolved]
  - Incorrect drug administration duration [Unknown]

NARRATIVE: CASE EVENT DATE: 20170217
